FAERS Safety Report 24933261 (Version 1)
Quarter: 2025Q1

REPORT INFORMATION
  Report Type: Spontaneous
  Country: GB (occurrence: GB)
  Receive Date: 20250206
  Receipt Date: 20250206
  Transmission Date: 20250408
  Serious: No
  Sender: ALKEM
  Company Number: None

PATIENT
  Age: 62 Year
  Sex: Female
  Weight: 88 kg

DRUGS (12)
  1. GABAPENTIN [Suspect]
     Active Substance: GABAPENTIN
     Indication: Analgesic therapy
     Dosage: UNK, TID (TAKE 1-4 THREE TIMES A DAY FOR PAIN RELIEF, CAPSULE)
     Route: 065
     Dates: start: 20231227
  2. AMITRIPTYLINE HYDROCHLORIDE [Concomitant]
     Active Substance: AMITRIPTYLINE HYDROCHLORIDE
     Indication: Ill-defined disorder
     Route: 065
     Dates: start: 20220112, end: 20231227
  3. CAPSAICIN [Concomitant]
     Active Substance: CAPSAICIN
     Indication: Ill-defined disorder
     Route: 065
     Dates: start: 20231221, end: 20240104
  4. CITALOPRAM [Concomitant]
     Active Substance: CITALOPRAM
     Indication: Ill-defined disorder
     Dosage: 2 DOSAGE FORM, QD (2 IN THE MORNING)
     Route: 065
     Dates: start: 20210916
  5. COCODAMOL [Concomitant]
     Active Substance: ACETAMINOPHEN\CODEINE PHOSPHATE
     Indication: Ill-defined disorder
     Dosage: UNK, QID (TAKE 1 OR 2 4 TIMES/DAY WHEN REQUIRED.)
     Route: 065
     Dates: start: 20200621
  6. BECLOMETHASONE\FORMOTEROL [Concomitant]
     Active Substance: BECLOMETHASONE\FORMOTEROL
     Indication: Ill-defined disorder
     Dosage: 1 DOSAGE FORM, BID (TAKE 1 INHALATION MORNING AND NIGHT)
     Dates: start: 20230413
  7. LANSOPRAZOLE [Concomitant]
     Active Substance: LANSOPRAZOLE
     Indication: Ill-defined disorder
     Route: 065
     Dates: start: 20200621
  8. LEVOTHYROXINE [Concomitant]
     Active Substance: LEVOTHYROXINE
     Indication: Ill-defined disorder
     Dosage: 1 DOSAGE FORM, QD (ONE TO BE TAKEN EACH MORNING BEFORE BREAKFAST)
     Route: 065
     Dates: start: 20200621
  9. Macrogol Compound [Concomitant]
     Indication: Ill-defined disorder
     Route: 065
     Dates: start: 20230601
  10. MEBEVERINE HYDROCHLORIDE [Concomitant]
     Active Substance: MEBEVERINE HYDROCHLORIDE
     Indication: Ill-defined disorder
     Dosage: 1 DOSAGE FORM, TID (TAKE ONE 3 TIMES/DAY AS REQUIRED)
     Route: 065
     Dates: start: 20210917
  11. NAPROXEN [Concomitant]
     Active Substance: NAPROXEN
     Indication: Ill-defined disorder
     Dosage: 1 DOSAGE FORM, BID (TAKE ONE TWICE DAILY WITH FOOD)
     Route: 065
     Dates: start: 20231221
  12. PREGABALIN [Concomitant]
     Active Substance: PREGABALIN
     Indication: Ill-defined disorder
     Dosage: 1 DOSAGE FORM, BID (TAKE ONE TWICE DAILY)
     Route: 065
     Dates: start: 20240116

REACTIONS (1)
  - Oedema [Recovering/Resolving]
